FAERS Safety Report 5427343-7 (Version None)
Quarter: 2007Q3

REPORT INFORMATION
  Report Type: 
  Country: None (occurrence: None)
  Receive Date: 20070823
  Receipt Date: 20070816
  Transmission Date: 20080115
  Serious: Yes (Hospitalization)
  Sender: FDA-Public Use
  Company Number: 2007328871

PATIENT
  Sex: Male

DRUGS (2)
  1. LISTERINE (MENTHOL, METHYL SALICYLATE, EUCALYPTOL, THYMOL) [Suspect]
     Dosage: ORAL
     Route: 048
  2. COOL MINT LISTERINE POCKETPAKS (NO ACTIVE INGREDIENT) [Suspect]
     Dosage: 3-4 PACKS,  ORAL
     Route: 048

REACTIONS (1)
  - LIVER DISORDER [None]
